FAERS Safety Report 25451595 (Version 1)
Quarter: 2025Q2

REPORT INFORMATION
  Report Type: Spontaneous
  Country: US (occurrence: None)
  Receive Date: 20250617
  Receipt Date: 20250617
  Transmission Date: 20250717
  Serious: Yes (Hospitalization)
  Sender: FDA-CTU
  Company Number: None

PATIENT
  Sex: Male

DRUGS (1)
  1. LENALIDOMIDE [Suspect]
     Active Substance: LENALIDOMIDE
     Indication: Plasma cell myeloma
     Dosage: 10 MG  DAILY ORAL
     Route: 048

REACTIONS (5)
  - Dehydration [None]
  - Renal disorder [None]
  - Full blood count decreased [None]
  - Asthenia [None]
  - Confusional state [None]
